FAERS Safety Report 8988467 (Version 1)
Quarter: 2012Q4

REPORT INFORMATION
  Report Type: Spontaneous
  Country: GB (occurrence: None)
  Receive Date: 20121218
  Receipt Date: 20121218
  Transmission Date: 20130627
  Serious: Yes (Hospitalization)
  Sender: FDA-Public Use
  Company Number: AUR-APL-2012-05284

PATIENT
  Age: 33 Year
  Sex: Female
  Weight: 60 kg

DRUGS (17)
  1. CEFALEXIN [Suspect]
     Route: 048
     Dates: start: 20121103, end: 20121108
  2. ACICLOVIR [Suspect]
     Route: 048
     Dates: start: 20121103, end: 20121108
  3. BUSCOPAN (BUSCOPAN COMP.) [Concomitant]
  4. CALCEOS (LEKOVIT CA) [Concomitant]
  5. CANESTEN (CLOTRIMAZOLE) [Concomitant]
  6. DUROGESIC DTRANS (FENTANYL) [Concomitant]
  7. ESOMEPRAZOLE (ESOMEPRAZOLE) [Concomitant]
  8. ETANERCEPT (ETANERCEPT) [Concomitant]
  9. INDOMETACIN ( INDOMETACIN) [Concomitant]
  10. MAXITROL (MAXITROL) [Concomitant]
  11. NUTRIZYM (PANCREATIN) [Concomitant]
  12. PROCHLORPERAZINE MALEATE (PROCHLORPERAZINE MALEATE) [Concomitant]
  13. PULMICORT (BUDESONIDE) [Concomitant]
  14. SUCRALFATE (SUCRALFATE) [Concomitant]
  15. SYSTANE (RHINARIS) [Concomitant]
  16. TYLEX (PARACETAMOL) [Concomitant]
  17. VENTOLIN (SALBUTAMOL) [Concomitant]

REACTIONS (1)
  - Pancreatitis [None]
